FAERS Safety Report 5327179-1 (Version None)
Quarter: 2007Q2

REPORT INFORMATION
  Report Type: 
  Country: None (occurrence: None)
  Receive Date: 20070514
  Receipt Date: 20070427
  Transmission Date: 20071010
  Serious: Yes (Other)
  Sender: FDA-Public Use
  Company Number: 2007SP007964

PATIENT
  Age: 76 Year
  Sex: Female

DRUGS (13)
  1. MIRALAX [Suspect]
     Indication: CONSTIPATION
     Dosage: PO
     Route: 048
     Dates: start: 20070401
  2. PEPTO-BISMOL [Suspect]
     Indication: DIARRHOEA
     Dosage: PO
     Route: 048
  3. PREVACID [Concomitant]
  4. ZANTAC [Concomitant]
  5. SINGULAIR [Concomitant]
  6. ADVAIR DISKUS 100/50 [Concomitant]
  7. LUMINAL [Concomitant]
  8. DYAZIDE [Concomitant]
  9. VITAMIN D [Concomitant]
  10. DARVOCET [Concomitant]
  11. GAS X [Concomitant]
  12. IMODIUM [Concomitant]
  13. BENTYL [Concomitant]

REACTIONS (5)
  - CYSTITIS [None]
  - FAECES DISCOLOURED [None]
  - IRRITABLE BOWEL SYNDROME [None]
  - MALAISE [None]
  - VIRAL INFECTION [None]
